FAERS Safety Report 14376263 (Version 5)
Quarter: 2021Q2

REPORT INFORMATION
  Report Type: Spontaneous
  Country: US (occurrence: US)
  Receive Date: 20180111
  Receipt Date: 20210512
  Transmission Date: 20210716
  Serious: Yes (Other)
  Sender: FDA-Public Use
  Company Number: US-BAYER-2018-005143

PATIENT
  Age: 26 Year
  Sex: Female

DRUGS (2)
  1. MIRENA [Suspect]
     Active Substance: LEVONORGESTREL
     Indication: HEAVY MENSTRUAL BLEEDING
  2. MIRENA [Suspect]
     Active Substance: LEVONORGESTREL
     Indication: CONTRACEPTION
     Dosage: 20 MCG/24HR, CONT
     Route: 015
     Dates: start: 20150715, end: 20180109

REACTIONS (11)
  - Pelvic pain [Unknown]
  - Menstruation irregular [None]
  - Complication of device removal [Recovered/Resolved]
  - Device issue [Recovered/Resolved]
  - Pelvic inflammatory disease [Unknown]
  - Device physical property issue [None]
  - Dizziness [None]
  - Medical device entrapment [None]
  - Menstruation delayed [Not Recovered/Not Resolved]
  - Genital haemorrhage [Unknown]
  - Vaginal discharge [None]

NARRATIVE: CASE EVENT DATE: 20160317
